FAERS Safety Report 5669312-8 (Version None)
Quarter: 2008Q1

REPORT INFORMATION
  Report Type: 
  Country: None (occurrence: None)
  Receive Date: 20080317
  Receipt Date: 20080310
  Transmission Date: 20080703
  Serious: Yes (Death, Hospitalization)
  Sender: FDA-Public Use
  Company Number: JP-AVENTIS-200810668JP

PATIENT
  Age: 60 Year
  Sex: Male

DRUGS (3)
  1. LANTUS [Suspect]
     Dosage: DOSE: 30 UNITS
     Route: 058
     Dates: start: 20071201
  2. OPTICLIK (INSULIN INJECTION PEN) [Suspect]
     Dates: start: 20071201
  3. NOVORAPID [Concomitant]
     Dosage: DOSE: 16 UNITS; FREQUENCY: BEFORE MEALS

REACTIONS (2)
  - DEATH [None]
  - HYPOGLYCAEMIA [None]
